FAERS Safety Report 23260034 (Version 1)
Quarter: 2023Q4

REPORT INFORMATION
  Report Type: Spontaneous
  Country: US (occurrence: US)
  Receive Date: 20231204
  Receipt Date: 20231204
  Transmission Date: 20240110
  Serious: Yes (Other)
  Sender: FDA-Public Use
  Company Number: US-ORGANON-O2311USA000226

PATIENT
  Age: 35 Year
  Sex: Female
  Weight: 73.02 kg

DRUGS (1)
  1. NEXPLANON [Suspect]
     Active Substance: ETONOGESTREL
     Indication: Contraception
     Dosage: 1 IMPLANT, LEFT ARM
     Route: 059
     Dates: start: 20230918, end: 20231130

REACTIONS (8)
  - Device expulsion [Recovered/Resolved]
  - Implant site erythema [Not Recovered/Not Resolved]
  - Implant site inflammation [Not Recovered/Not Resolved]
  - Implant site irritation [Not Recovered/Not Resolved]
  - Implant site injury [Not Recovered/Not Resolved]
  - Implant site pain [Not Recovered/Not Resolved]
  - Implant site swelling [Not Recovered/Not Resolved]
  - Hypersensitivity [Not Recovered/Not Resolved]

NARRATIVE: CASE EVENT DATE: 20231101
